FAERS Safety Report 13032607 (Version 1)
Quarter: 2016Q4

REPORT INFORMATION
  Report Type: Spontaneous
  Country: US (occurrence: US)
  Receive Date: 20161215
  Receipt Date: 20161215
  Transmission Date: 20170207
  Serious: No
  Sender: FDA-Public Use
  Company Number: US-PFIZER INC-2016581684

PATIENT
  Age: 50 Year
  Sex: Female
  Weight: 104 kg

DRUGS (3)
  1. LAMICTAL [Suspect]
     Active Substance: LAMOTRIGINE
     Indication: DEPRESSION
     Dosage: 50 MG, 2X/DAY, ^50 MG EXTENDED RELEASE TABLET, ONE TABLET BY MOUTH TWICE A DAY^
     Route: 048
     Dates: start: 201610
  2. PRISTIQ EXTENDED-RELEASE [Suspect]
     Active Substance: DESVENLAFAXINE SUCCINATE
     Indication: DEPRESSION
     Dosage: 25 MG, 1X/DAY, ^25 MG ER TABLET, ONE TABLET BY MOUTH ONCE A DAY^
     Route: 048
     Dates: start: 20161207
  3. LAMICTAL [Suspect]
     Active Substance: LAMOTRIGINE
     Indication: ANXIETY

REACTIONS (7)
  - Fatigue [Not Recovered/Not Resolved]
  - Visual impairment [Unknown]
  - Pharyngeal oedema [Unknown]
  - Drug prescribing error [Unknown]
  - Sinusitis [Unknown]
  - Social avoidant behaviour [Not Recovered/Not Resolved]
  - Headache [Not Recovered/Not Resolved]

NARRATIVE: CASE EVENT DATE: 2016
